FAERS Safety Report 21259495 (Version 1)
Quarter: 2022Q3

REPORT INFORMATION
  Report Type: Report from Study
  Country: US (occurrence: US)
  Receive Date: 20220826
  Receipt Date: 20220826
  Transmission Date: 20221027
  Serious: Yes (Other)
  Sender: FDA-Public Use
  Company Number: US-ABBVIE-22K-163-4513922-00

PATIENT
  Age: 42 Year
  Sex: Female

DRUGS (1)
  1. HUMIRA [Suspect]
     Active Substance: ADALIMUMAB
     Indication: Psoriatic arthropathy
     Route: 058
     Dates: start: 20211222

REACTIONS (10)
  - Carpal tunnel syndrome [Unknown]
  - Tendon operation [Unknown]
  - Asthenia [Unknown]
  - Back pain [Not Recovered/Not Resolved]
  - Tension headache [Unknown]
  - Stress [Unknown]
  - Dermatitis contact [Unknown]
  - Swelling face [Unknown]
  - Fibromyalgia [Unknown]
  - Pain [Unknown]

NARRATIVE: CASE EVENT DATE: 20220714
